FAERS Safety Report 8157795-3 (Version None)
Quarter: 2012Q1

REPORT INFORMATION
  Report Type: 
  Country: None (occurrence: None)
  Receive Date: 20120222
  Receipt Date: 20110823
  Transmission Date: 20120608
  Serious: No
  Sender: FDA-Public Use
  Company Number: US-ASTRAZENECA-2011SE50551

PATIENT
  Sex: Female

DRUGS (2)
  1. DIOVAN [Concomitant]
  2. LISINOPRIL AND HYDROCHLOROTHIAZIDE [Suspect]
     Route: 048

REACTIONS (2)
  - ADVERSE DRUG REACTION [None]
  - COUGH [None]
